FAERS Safety Report 6306633-X (Version None)
Quarter: 2009Q3

REPORT INFORMATION
  Report Type: 
  Country: None (occurrence: None)
  Receive Date: 20090812
  Receipt Date: 20090803
  Transmission Date: 20100115
  Serious: Yes (Death, Hospitalization)
  Sender: FDA-Public Use
  Company Number: B0583252A

PATIENT
  Sex: Female

DRUGS (4)
  1. TYKERB [Suspect]
     Indication: BREAST CANCER
     Dates: start: 20090625, end: 20090706
  2. XELODA [Suspect]
     Indication: DRUG USE FOR UNKNOWN INDICATION
     Dates: start: 20090625, end: 20090706
  3. IRINOTECAN HYDROCHLORIDE [Concomitant]
     Dates: start: 20080301
  4. HERCEPTIN [Concomitant]
     Dates: start: 20080301

REACTIONS (3)
  - DECREASED APPETITE [None]
  - DISEASE PROGRESSION [None]
  - NAUSEA [None]
